FAERS Safety Report 20688567 (Version 1)
Quarter: 2022Q2

REPORT INFORMATION
  Report Type: Other
  Country: DE (occurrence: DE)
  Receive Date: 20220408
  Receipt Date: 20220408
  Transmission Date: 20220721
  Serious: Yes (Other)
  Sender: FDA-Public Use
  Company Number: None

PATIENT
  Age: 36 Year
  Sex: Male
  Weight: 81 kg

DRUGS (2)
  1. PAROXETINE [Suspect]
     Active Substance: PAROXETINE
     Indication: Depression
     Dosage: 20-60 MILLIGRAM
     Route: 048
     Dates: start: 200803, end: 20201226
  2. DULOXETINE [Suspect]
     Active Substance: DULOXETINE
     Indication: Depression
     Dosage: 60-90 MILLIGRAM
     Route: 048
     Dates: start: 200803, end: 20201226

REACTIONS (11)
  - Erectile dysfunction [Not Recovered/Not Resolved]
  - Apathy [Not Recovered/Not Resolved]
  - Anhedonia [Not Recovered/Not Resolved]
  - Decreased interest [Not Recovered/Not Resolved]
  - Personality change [Not Recovered/Not Resolved]
  - Feeling abnormal [Not Recovered/Not Resolved]
  - Semen discolouration [Not Recovered/Not Resolved]
  - Orgasmic sensation decreased [Not Recovered/Not Resolved]
  - Loss of libido [Not Recovered/Not Resolved]
  - Emotional poverty [Not Recovered/Not Resolved]
  - Sexual dysfunction [Not Recovered/Not Resolved]

NARRATIVE: CASE EVENT DATE: 20180101
